FAERS Safety Report 5644470-X (Version None)
Quarter: 2008Q1

REPORT INFORMATION
  Report Type: 
  Country: None (occurrence: None)
  Receive Date: 20080229
  Receipt Date: 20070111
  Transmission Date: 20080703
  Serious: No
  Sender: FDA-Public Use
  Company Number: A0635403A

PATIENT
  Sex: Female

DRUGS (2)
  1. VALTREX [Suspect]
     Route: 048
  2. LOESTRIN 1.5/30 [Suspect]

REACTIONS (3)
  - DRUG INEFFECTIVE [None]
  - DRUG INTERACTION [None]
  - ORAL HERPES [None]
